FAERS Safety Report 24007454 (Version 1)
Quarter: 2024Q2

REPORT INFORMATION
  Report Type: Spontaneous
  Country: US (occurrence: US)
  Receive Date: 20240625
  Receipt Date: 20240625
  Transmission Date: 20240716
  Serious: Yes (Hospitalization)
  Sender: FDA-Public Use
  Company Number: US-NOVOPROD-1242265

PATIENT
  Sex: Female

DRUGS (1)
  1. WEGOVY [Suspect]
     Active Substance: SEMAGLUTIDE
     Indication: Product used for unknown indication
     Dosage: UNK
     Route: 058
     Dates: end: 20240201

REACTIONS (7)
  - Dysplasia [Unknown]
  - Mouth ulceration [Unknown]
  - Neck pain [Unknown]
  - Ovarian cyst [Not Recovered/Not Resolved]
  - Tongue pruritus [Unknown]
  - Abdominal discomfort [Unknown]
  - Fatigue [Unknown]
